FAERS Safety Report 5396679-0 (Version None)
Quarter: 2007Q3

REPORT INFORMATION
  Report Type: 
  Country: None (occurrence: None)
  Receive Date: 20070725
  Receipt Date: 20070718
  Transmission Date: 20080115
  Serious: Yes (Hospitalization)
  Sender: FDA-Public Use
  Company Number: JP-MERCK-0707USA03643

PATIENT
  Age: 8 Year
  Sex: Male
  Weight: 31 kg

DRUGS (2)
  1. COZAAR [Suspect]
     Indication: RENAL DISORDER
     Route: 048
     Dates: start: 20070416, end: 20070717
  2. ENALAPRIL MALEATE [Suspect]
     Indication: RENAL DISORDER
     Route: 048
     Dates: start: 20070326, end: 20070717

REACTIONS (3)
  - NEPHRITIS INTERSTITIAL [None]
  - OVERDOSE [None]
  - RENAL IMPAIRMENT [None]
